FAERS Safety Report 26218967 (Version 1)
Quarter: 2025Q4

REPORT INFORMATION
  Report Type: Spontaneous
  Country: US (occurrence: US)
  Receive Date: 20251231
  Receipt Date: 20251231
  Transmission Date: 20260117
  Serious: Yes (Hospitalization, Disabling, Other)
  Sender: NOVO NORDISK
  Company Number: US-NOVOPROD-1596001

PATIENT
  Age: 71 Year
  Sex: Male

DRUGS (3)
  1. NOVOLOG MIX 70/30 [Suspect]
     Active Substance: INSULIN ASPART
     Indication: Type 2 diabetes mellitus
     Dosage: 20 IU, BID
     Route: 058
     Dates: start: 20250601
  2. TOUJEO [Concomitant]
     Active Substance: INSULIN GLARGINE
     Indication: Product used for unknown indication
     Dosage: 12 CC AT BEDTIME
  3. MECLIZINE [Concomitant]
     Active Substance: MECLIZINE HYDROCHLORIDE
     Indication: Vertigo
     Dosage: UNK

REACTIONS (9)
  - Vertigo [Recovered/Resolved]
  - Vertigo [Recovered/Resolved]
  - Deafness unilateral [Recovered/Resolved]
  - Prostate cancer [Unknown]
  - Acute cholecystitis necrotic [Recovered/Resolved]
  - Post procedural haemorrhage [Recovered/Resolved]
  - Deafness unilateral [Not Recovered/Not Resolved]
  - Cholecystectomy [Recovered/Resolved]
  - Vertigo [Recovered/Resolved]

NARRATIVE: CASE EVENT DATE: 20250705
